FAERS Safety Report 24940893 (Version 2)
Quarter: 2025Q3

REPORT INFORMATION
  Report Type: Spontaneous
  Country: US (occurrence: US)
  Receive Date: 20250207
  Receipt Date: 20250810
  Transmission Date: 20251021
  Serious: No
  Sender: ALEXION PHARMACEUTICALS
  Company Number: US-ASTRAZENECA-202502GLO004142US

PATIENT
  Age: 88 Year
  Sex: Female

DRUGS (2)
  1. PRILOSEC [Suspect]
     Active Substance: OMEPRAZOLE MAGNESIUM
     Route: 065
  2. RECORLEV [Concomitant]
     Active Substance: LEVOKETOCONAZOLE
     Route: 065

REACTIONS (1)
  - Throat irritation [Unknown]
